FAERS Safety Report 15276230 (Version 1)
Quarter: 2018Q3

REPORT INFORMATION
  Report Type: Report from Study
  Country: DE (occurrence: DE)
  Receive Date: 20180814
  Receipt Date: 20180814
  Transmission Date: 20181010
  Serious: Yes (Hospitalization, Other)
  Sender: FDA-Public Use
  Company Number: DE-TEVA-2018-DE-939131

PATIENT
  Sex: Male
  Weight: 80 kg

DRUGS (20)
  1. JAKAVI [Suspect]
     Active Substance: RUXOLITINIB
     Dosage: 2 MONTHS PRIOR TO STUDY INCLUSION
     Route: 048
  2. SPIRONOLACTONE. [Concomitant]
     Active Substance: SPIRONOLACTONE
     Indication: CARDIOMYOPATHY
     Dosage: 25 OT, QD
     Route: 065
     Dates: start: 20150325
  3. JAKAVI [Suspect]
     Active Substance: RUXOLITINIB
     Dosage: 60 MILLIGRAM DAILY;
     Route: 048
     Dates: start: 20150929
  4. SIMVASTATIN. [Concomitant]
     Active Substance: SIMVASTATIN
     Indication: CARDIOMYOPATHY
     Dosage: 20 MILLIGRAM DAILY;
     Route: 065
     Dates: start: 20150325
  5. RED BLOOD CELLS [Concomitant]
     Active Substance: HUMAN RED BLOOD CELL
     Indication: PRODUCT USED FOR UNKNOWN INDICATION
     Route: 065
     Dates: end: 2014
  6. CONCOR [Concomitant]
     Active Substance: BISOPROLOL FUMARATE
     Indication: CARDIOMYOPATHY
     Route: 065
     Dates: start: 20150325
  7. BISOHEXAL [Concomitant]
     Active Substance: BISOPROLOL FUMARATE
     Indication: CARDIOMYOPATHY
     Dosage: 15 MILLIGRAM DAILY;
     Route: 065
     Dates: start: 20130115
  8. FUROSEMIDE. [Suspect]
     Active Substance: FUROSEMIDE
     Indication: CARDIAC FAILURE
     Dosage: 80 OT, QD
     Route: 065
     Dates: start: 20150806
  9. PROCORALAN [Concomitant]
     Active Substance: IVABRADINE
     Indication: CARDIOMYOPATHY
     Dosage: 15 MILLIGRAM DAILY;
     Route: 065
     Dates: start: 20150325
  10. VIGANTOLETTEN [Concomitant]
     Active Substance: CHOLECALCIFEROL
     Indication: PRODUCT USED FOR UNKNOWN INDICATION
     Dosage: 1000 IU (INTERNATIONAL UNIT) DAILY;
     Route: 065
     Dates: start: 20170823
  11. RAMIPRIL. [Concomitant]
     Active Substance: RAMIPRIL
     Indication: CARDIOMYOPATHY
     Dosage: 10 MILLIGRAM DAILY;
     Route: 065
     Dates: start: 20150325
  12. ALLOPURINOL. [Concomitant]
     Active Substance: ALLOPURINOL
     Indication: PRODUCT USED FOR UNKNOWN INDICATION
     Route: 065
     Dates: start: 20170811
  13. JAKAVI [Suspect]
     Active Substance: RUXOLITINIB
     Dosage: 40 MILLIGRAM DAILY;
     Route: 048
     Dates: start: 20170803
  14. ALDACTONE [Concomitant]
     Active Substance: SPIRONOLACTONE
     Indication: FLUID RETENTION
     Route: 065
  15. JAKAVI [Suspect]
     Active Substance: RUXOLITINIB
     Indication: PRIMARY MYELOFIBROSIS
     Dosage: 80 MILLIGRAM DAILY;
     Route: 048
     Dates: start: 20151215
  16. JAKAVI [Suspect]
     Active Substance: RUXOLITINIB
     Dosage: 40 MILLIGRAM DAILY;
     Route: 048
     Dates: start: 20150710
  17. JAKAVI [Suspect]
     Active Substance: RUXOLITINIB
     Dosage: 60 MILLIGRAM DAILY;
     Route: 048
     Dates: start: 20150305
  18. JAKAVI [Suspect]
     Active Substance: RUXOLITINIB
     Dosage: 40 MILLIGRAM DAILY;
     Route: 048
     Dates: start: 20150125
  19. COTRIM [Concomitant]
     Active Substance: SULFAMETHOXAZOLE\TRIMETHOPRIM
     Indication: PRODUCT USED FOR UNKNOWN INDICATION
     Route: 065
     Dates: start: 20170706, end: 20170710
  20. ASPIRIN. [Concomitant]
     Active Substance: ASPIRIN
     Indication: CARDIAC FAILURE
     Dosage: 100 MILLIGRAM DAILY;
     Route: 065
     Dates: start: 20150325

REACTIONS (10)
  - Iron overload [Not Recovered/Not Resolved]
  - Splenomegaly [Not Recovered/Not Resolved]
  - Muscle spasms [Not Recovered/Not Resolved]
  - Hypocalcaemia [Not Recovered/Not Resolved]
  - Dyspnoea [Recovered/Resolved]
  - Insomnia [Recovering/Resolving]
  - Cardiac failure [Recovered/Resolved with Sequelae]
  - Pericardial effusion [Recovered/Resolved]
  - Malaise [Not Recovered/Not Resolved]
  - Pain in extremity [Not Recovered/Not Resolved]

NARRATIVE: CASE EVENT DATE: 20150413
